FAERS Safety Report 22604494 (Version 1)
Quarter: 2023Q2

REPORT INFORMATION
  Report Type: Spontaneous
  Country: US (occurrence: None)
  Receive Date: 20230614
  Receipt Date: 20230614
  Transmission Date: 20230722
  Serious: Yes (Hospitalization, Disabling, Other)
  Sender: FDA-Public Use
  Company Number: None

PATIENT
  Age: 33 Year
  Sex: Female
  Weight: 72 kg

DRUGS (2)
  1. CORTISONE [Suspect]
     Active Substance: CORTISONE
     Indication: Injection
     Dates: start: 20170712, end: 20171009
  2. KENALOG [Suspect]
     Active Substance: TRIAMCINOLONE ACETONIDE

REACTIONS (9)
  - Joint injury [None]
  - Thermal burn [None]
  - Limb injury [None]
  - Arthralgia [None]
  - Hypersensitivity [None]
  - Drug hypersensitivity [None]
  - Osteochondrosis [None]
  - Wrist fracture [None]
  - Circumstance or information capable of leading to medication error [None]

NARRATIVE: CASE EVENT DATE: 20170712
